FAERS Safety Report 16961920 (Version 1)
Quarter: 2019Q4

REPORT INFORMATION
  Report Type: Spontaneous
  Country: US (occurrence: US)
  Receive Date: 20191025
  Receipt Date: 20191025
  Transmission Date: 20200122
  Serious: Yes (Other)
  Sender: FDA-Public Use
  Company Number: US-PFIZER INC-2016213768

PATIENT
  Age: 66 Year
  Sex: Male
  Weight: 102 kg

DRUGS (21)
  1. VIAGRA [Suspect]
     Active Substance: SILDENAFIL CITRATE
     Dosage: UNK UNK, AS NEEDED (ONE HALF TO ONE TABLET AS NEEDED)
  2. LOPROX [Concomitant]
     Active Substance: CICLOPIROX\CICLOPIROX OLAMINE
     Dosage: UNK UNK, 2X/DAY (APPLY TOPICALLY 2(TWO) TIMES DAILY)
     Route: 061
  3. VIBRAMYCIN [Concomitant]
     Active Substance: DOXYCYCLINE
     Dosage: 100 MG, UNK (TAKE 100 MG BY MOUTH)
     Route: 048
  4. OMEGA-3 FISH OIL [Concomitant]
     Active Substance: FISH OIL\OMEGA-3 FATTY ACIDS
     Dosage: 1000 MG, UNK
     Route: 048
  5. PRILOSEC [Concomitant]
     Active Substance: OMEPRAZOLE MAGNESIUM
     Dosage: 20 MG, DAILY
     Route: 048
  6. CIALIS [Concomitant]
     Active Substance: TADALAFIL
     Indication: ERECTILE DYSFUNCTION
     Dosage: 5 MG, AS NEEDED
     Route: 048
  7. ASPIRIN. [Concomitant]
     Active Substance: ASPIRIN
     Dosage: 81 MG, UNK
     Route: 048
  8. MOBIC [Concomitant]
     Active Substance: MELOXICAM
     Indication: PAIN
     Dosage: 7.5 MG, AS NEEDED (TAKE 1 TABLET BY MOUTH 2 (TWO) TIMES DAILY)
     Route: 048
  9. OLOPATADINE HCL [Concomitant]
     Active Substance: OLOPATADINE HYDROCHLORIDE
     Dosage: 2 DF, 2X/DAY(2 SPRAYS BY NASAL ROUTE 2 (TWO) TIMES DAILY)
     Route: 045
  10. KENALOG [Concomitant]
     Active Substance: TRIAMCINOLONE ACETONIDE
     Dosage: UNK UNK, AS NEEDED (APPLY 1 APPLICATION TOPICALLY AS NEEDED)
     Route: 061
  11. VITAMIN D [Concomitant]
     Active Substance: VITAMIN D NOS
     Dosage: 1000 IU, UNK (TAKE 1000 UNITS)
     Route: 048
  12. VITAMIN B-1 [Concomitant]
     Active Substance: THIAMINE HYDROCHLORIDE
     Dosage: 250 MG, UNK (TAKE 1 TABLET)
     Route: 048
  13. ROMYCIN [Concomitant]
     Dosage: UNK UNK, 4X/DAY(APPLY 0.5 INCH RIBBON TO LEFT EYE 4 TIMES A DAY FOR 5-7 DAYS)
     Route: 061
  14. HYDRODIURIL [Concomitant]
     Active Substance: HYDROCHLOROTHIAZIDE
     Dosage: 25 MG, 1X/DAY
     Route: 048
  15. PRINIVIL [Concomitant]
     Active Substance: LISINOPRIL
     Dosage: 40 MG, DAILY
     Route: 048
  16. ACETAMINOPHEN;CODEINE [Concomitant]
     Active Substance: ACETAMINOPHEN\CODEINE PHOSPHATE
     Dosage: UNK UNK, AS NEEDED[AETAMINOPHEN: 300MG ; CODEINE: 30MG]
     Route: 048
  17. FLEXERIL [Concomitant]
     Active Substance: CYCLOBENZAPRINE HYDROCHLORIDE
     Dosage: 10 MG, AS NEEDED (TAKE ONE TABLET BY MOUTH EVERYDAY AT BEDTIME AS NEEDED)
     Route: 048
  18. ALLEGRA [Concomitant]
     Active Substance: FEXOFENADINE HYDROCHLORIDE
     Indication: HYPERSENSITIVITY
     Dosage: 180 MG, DAILY (TAKE 1 TABLET BY MOUTH DAILY)
     Route: 048
  19. NASONEX [Concomitant]
     Active Substance: MOMETASONE FUROATE
     Dosage: 100 UG, DAILY (50 MCG/ACT) (2 SPRAYS BY NASAL ROUTE DAILY)
     Route: 045
  20. AFRIN [Concomitant]
     Active Substance: OXYMETAZOLINE
     Dosage: 2 DF, 2X/DAY(2 SPRAYS BY NASAL ROUTE 2 (TWO) TIMES DAILY. DON^T USE FOR MORE THAN 3 DAYS)
     Route: 045
  21. ZESTRIL [Concomitant]
     Active Substance: LISINOPRIL
     Dosage: 40 MG, DAILY
     Route: 048

REACTIONS (3)
  - Road traffic accident [Recovering/Resolving]
  - Intentional product misuse [Unknown]
  - Fatigue [Unknown]

NARRATIVE: CASE EVENT DATE: 20191002
